FAERS Safety Report 18436052 (Version 1)
Quarter: 2020Q4

REPORT INFORMATION
  Report Type: Spontaneous
  Country: US (occurrence: US)
  Receive Date: 20201028
  Receipt Date: 20201028
  Transmission Date: 20210114
  Serious: Yes (Hospitalization)
  Sender: FDA-Public Use
  Company Number: US-AMNEAL PHARMACEUTICALS-2020-AMRX-03334

PATIENT
  Age: 17 Year
  Sex: Female

DRUGS (1)
  1. BENZONATATE. [Suspect]
     Active Substance: BENZONATATE
     Indication: PRODUCT USED FOR UNKNOWN INDICATION
     Dosage: UNK (12 TABLETS)
     Route: 048

REACTIONS (8)
  - Dizziness [Unknown]
  - Somnolence [Unknown]
  - Ventricular fibrillation [Recovered/Resolved]
  - Nausea [Unknown]
  - Apnoea [Unknown]
  - Seizure [Unknown]
  - Cardiac arrest [Recovered/Resolved]
  - Overdose [Unknown]
